FAERS Safety Report 4789247-2 (Version None)
Quarter: 2005Q4

REPORT INFORMATION
  Report Type: 
  Country: None (occurrence: None)
  Receive Date: 20051004
  Receipt Date: 20050922
  Transmission Date: 20060501
  Serious: Yes (Life-Threatening, Hospitalization)
  Sender: FDA-Public Use
  Company Number: WAES 0509USA01784

PATIENT
  Age: 81 Year
  Sex: Female

DRUGS (8)
  1. COZAAR [Suspect]
     Indication: HYPERTENSION
     Dosage: 50 MG DAILY; PO
     Route: 048
     Dates: start: 20010421, end: 20040920
  2. ASPIRIN [Suspect]
     Indication: PROPHYLAXIS
     Dosage: 100 MG DAILY; PO
     Route: 048
     Dates: start: 20010919, end: 20040920
  3. ASPIRIN [Suspect]
     Indication: THROMBOSIS PROPHYLAXIS
     Dosage: 100 MG DAILY; PO
     Route: 048
     Dates: start: 20010919, end: 20040920
  4. ALFAROL [Concomitant]
  5. NITRAZEPAM [Concomitant]
  6. JUVELA [Concomitant]
  7. LIPITOR [Concomitant]
  8. THYRADIN-S [Concomitant]

REACTIONS (2)
  - HYDROCEPHALUS [None]
  - SUBARACHNOID HAEMORRHAGE [None]
